FAERS Safety Report 9332644 (Version 1)
Quarter: 2013Q2

REPORT INFORMATION
  Report Type: Spontaneous
  Country: CZ (occurrence: None)
  Receive Date: 20130603
  Receipt Date: 20130603
  Transmission Date: 20140414
  Serious: Yes (Other)
  Sender: FDA-Public Use
  Company Number: CZ-025178

PATIENT
  Sex: 0

DRUGS (3)
  1. BUSULFAN [Suspect]
     Indication: STEM CELL TRANSPLANT
     Dosage: (4 MG/KG, 1 IN 1 D)
     Route: 048
  2. FLUDARABINE [Suspect]
     Indication: STEM CELL TRANSPLANT
     Dosage: ON DAYS -10 TO -5 (30 MG/M2, 1 IN 1 DAYS) INTRAVENOUS (NOT OTHERWISE SPECIFIED)
     Route: 042
  3. ANTITHYMOCYTE GLOBULIN [Suspect]
     Indication: STEM CELL TRANSPLANT
     Dosage: (10 MG/KG, 1 IN 1 DAYS) UNKNOWN

REACTIONS (2)
  - Hepatotoxicity [None]
  - Gastrointestinal toxicity [None]
